FAERS Safety Report 9934639 (Version 2)
Quarter: 2014Q1

REPORT INFORMATION
  Report Type: Spontaneous
  Country: US (occurrence: US)
  Receive Date: 20140228
  Receipt Date: 20140228
  Transmission Date: 20141002
  Serious: Yes (Hospitalization)
  Sender: FDA-Public Use
  Company Number: US-SA-2013SA102410

PATIENT
  Age: 49 Year
  Sex: Female
  Weight: 77.3 kg

DRUGS (7)
  1. FABRAZYME [Suspect]
     Indication: FABRY^S DISEASE
     Route: 042
     Dates: start: 2003
  2. ACETAMINOPHEN [Concomitant]
     Indication: PREMEDICATION
  3. ASPIRIN [Concomitant]
     Indication: ANTICOAGULANT THERAPY
     Dates: start: 20040319
  4. COUMADIN [Concomitant]
     Indication: ANTICOAGULANT THERAPY
     Dosage: DOSE VARIES
     Dates: start: 20041107
  5. LEXAPRO [Concomitant]
     Dates: start: 20060305
  6. BACLOFEN [Concomitant]
     Indication: MUSCULOSKELETAL STIFFNESS
     Dates: start: 20060602
  7. RITALIN [Concomitant]
     Dates: start: 201110

REACTIONS (3)
  - Fall [Recovered/Resolved]
  - Dysarthria [Recovered/Resolved]
  - Eye movement disorder [Recovered/Resolved]
